FAERS Safety Report 9132178 (Version 1)
Quarter: 2013Q1

REPORT INFORMATION
  Report Type: Spontaneous
  Country: JP (occurrence: JP)
  Receive Date: 20130107
  Receipt Date: 20130107
  Transmission Date: 20140127
  Serious: Yes (Life-Threatening)
  Sender: FDA-Public Use
  Company Number: JP-ABBOTT-13P-087-1032529-00

PATIENT
  Age: 66 Year
  Sex: Male

DRUGS (5)
  1. MILRINONE [Concomitant]
     Indication: PRODUCT USED FOR UNKNOWN INDICATION
     Dosage: UNKNOWN
     Route: 065
  2. CARPERITIDE [Concomitant]
     Indication: PRODUCT USED FOR UNKNOWN INDICATION
     Dosage: UNKNOWN
     Route: 065
  3. SEVOFLURANE [Suspect]
     Indication: PRODUCT USED FOR UNKNOWN INDICATION
  4. REMIFENTANIL HYDROCHLORIDE [Concomitant]
     Indication: PRODUCT USED FOR UNKNOWN INDICATION
     Dosage: UNKNOWN
     Route: 065
  5. MIDAZOLAM [Concomitant]
     Indication: PRODUCT USED FOR UNKNOWN INDICATION
     Dosage: UNKNOWN
     Route: 065

REACTIONS (2)
  - Ventricular extrasystoles [Not Recovered/Not Resolved]
  - Heart alternation [Not Recovered/Not Resolved]
